FAERS Safety Report 21859095 (Version 1)
Quarter: 2023Q1

REPORT INFORMATION
  Report Type: Report from Study
  Country: US (occurrence: US)
  Receive Date: 20230113
  Receipt Date: 20230113
  Transmission Date: 20230417
  Serious: No
  Sender: FDA-Public Use
  Company Number: US-ABBVIE-4238608

PATIENT
  Age: 77 Year
  Sex: Female

DRUGS (1)
  1. HUMIRA [Suspect]
     Active Substance: ADALIMUMAB
     Indication: Product used for unknown indication
     Dosage: CF
     Route: 058

REACTIONS (6)
  - Feeling abnormal [Unknown]
  - Injection site bruising [Unknown]
  - Fatigue [Unknown]
  - Hypertonic bladder [Unknown]
  - Spinal osteoarthritis [Unknown]
  - Vascular injury [Unknown]

NARRATIVE: CASE EVENT DATE: 20221213
